FAERS Safety Report 4287396-9 (Version None)
Quarter: 2004Q1

REPORT INFORMATION
  Report Type: 
  Country: None (occurrence: None)
  Receive Date: 20040209
  Receipt Date: 20030619
  Transmission Date: 20041129
  Serious: No
  Sender: FDA-Public Use
  Company Number: US-GLAXOSMITHKLINE-A0413244A

PATIENT
  Age: 20 Year
  Sex: Male

DRUGS (2)
  1. PAXIL CR [Suspect]
     Indication: ANXIETY
     Route: 048
     Dates: start: 20030501, end: 20030615
  2. XANAX [Concomitant]

REACTIONS (4)
  - ANXIETY [None]
  - DIARRHOEA [None]
  - DYSPHAGIA [None]
  - LYMPHADENOPATHY [None]
